FAERS Safety Report 23784551 (Version 1)
Quarter: 2024Q2

REPORT INFORMATION
  Report Type: Spontaneous
  Country: US (occurrence: None)
  Receive Date: 20240425
  Receipt Date: 20240425
  Transmission Date: 20240716
  Serious: No
  Sender: FDA-Public Use
  Company Number: None

PATIENT
  Age: 41 Year
  Sex: Female
  Weight: 66.6 kg

DRUGS (1)
  1. CYTARABINE [Suspect]
     Active Substance: CYTARABINE

REACTIONS (3)
  - Febrile neutropenia [None]
  - Myalgia [None]
  - SARS-CoV-2 test positive [None]

NARRATIVE: CASE EVENT DATE: 20231204
